FAERS Safety Report 20301990 (Version 1)
Quarter: 2022Q1

REPORT INFORMATION
  Report Type: Spontaneous
  Country: US (occurrence: US)
  Receive Date: 20220105
  Receipt Date: 20220105
  Transmission Date: 20220423
  Serious: No
  Sender: FDA-Public Use
  Company Number: US-ABBVIE-21K-163-3802667-00

PATIENT
  Sex: Female
  Weight: 70.824 kg

DRUGS (1)
  1. VENCLEXTA [Suspect]
     Active Substance: VENETOCLAX
     Indication: Chronic lymphocytic leukaemia
     Route: 048

REACTIONS (6)
  - Lip swelling [Unknown]
  - Orbital oedema [Unknown]
  - Swollen tongue [Unknown]
  - Weight increased [Unknown]
  - Nausea [Unknown]
  - Skin oedema [Unknown]
